FAERS Safety Report 6330795-1 (Version None)
Quarter: 2009Q3

REPORT INFORMATION
  Report Type: 
  Country: None (occurrence: None)
  Receive Date: 20090827
  Receipt Date: 20090820
  Transmission Date: 20100115
  Serious: Yes (Death, Other)
  Sender: FDA-Public Use
  Company Number: PHHY2009JP22659

PATIENT
  Sex: Female
  Weight: 60 kg

DRUGS (15)
  1. STI571/CGP57148B T35717+TAB [Suspect]
     Indication: ACUTE LYMPHOCYTIC LEUKAEMIA
     Dosage: 200 MG DAILY
     Route: 048
     Dates: start: 20070512, end: 20070515
  2. STI571/CGP57148B T35717+TAB [Suspect]
     Dosage: 400 MG DAILY
     Route: 048
     Dates: start: 20070516, end: 20070603
  3. STI571/CGP57148B T35717+TAB [Suspect]
     Dosage: 200 MG DAILY
     Route: 048
     Dates: start: 20070604, end: 20070613
  4. STI571/CGP57148B T35717+TAB [Suspect]
     Dosage: 300 MG DAILY
     Route: 048
     Dates: start: 20070614, end: 20070625
  5. STI571/CGP57148B T35717+TAB [Suspect]
     Dosage: 500 MG DAILY
     Route: 048
     Dates: start: 20070626, end: 20070701
  6. STI571/CGP57148B T35717+TAB [Suspect]
     Dosage: 600 MG DAILY
     Route: 048
     Dates: start: 20070702, end: 20070710
  7. STI571/CGP57148B T35717+TAB [Suspect]
     Dosage: 200 MG DAILY
     Route: 048
     Dates: start: 20070711, end: 20070713
  8. MAXIPIME [Concomitant]
     Dosage: 4 G, UNK
     Route: 041
     Dates: start: 20070503, end: 20070505
  9. VFEND [Concomitant]
     Indication: PROPHYLAXIS
     Dosage: 200 MG, UNK
     Route: 048
     Dates: start: 20070505, end: 20070711
  10. ALOSITOL [Concomitant]
     Indication: PROPHYLAXIS
     Dosage: 200 MG, UNK
     Route: 048
     Dates: start: 20070502, end: 20070710
  11. ORGARAN [Concomitant]
     Indication: PROPHYLAXIS
     Dosage: 2500 IU, UNK
     Route: 042
     Dates: start: 20070502, end: 20070509
  12. DOXORUBICIN HCL [Concomitant]
     Dosage: UNK
     Dates: start: 20070615, end: 20070710
  13. VINCRISTINE [Concomitant]
     Dosage: UNK
     Dates: start: 20070615, end: 20070710
  14. PREDNISOLONE [Concomitant]
     Dosage: UNK
     Dates: start: 20070615, end: 20070710
  15. ELSPAR [Concomitant]
     Dosage: UNK
     Dates: start: 20070615, end: 20070710

REACTIONS (10)
  - ALTERED STATE OF CONSCIOUSNESS [None]
  - CARDIAC FAILURE CONGESTIVE [None]
  - DECREASED APPETITE [None]
  - DISSEMINATED INTRAVASCULAR COAGULATION [None]
  - HEPATIC FUNCTION ABNORMAL [None]
  - HYPONATRAEMIA [None]
  - MALIGNANT NEOPLASM PROGRESSION [None]
  - NAUSEA [None]
  - OEDEMA [None]
  - PLEURAL EFFUSION [None]
